FAERS Safety Report 5334843-7 (Version None)
Quarter: 2007Q2

REPORT INFORMATION
  Report Type: 
  Country: None (occurrence: None)
  Receive Date: 20070525
  Receipt Date: 20070516
  Transmission Date: 20071010
  Serious: Yes (Other)
  Sender: FDA-Public Use
  Company Number: JP-ROCHE-498592

PATIENT
  Sex: Female

DRUGS (1)
  1. XELODA [Suspect]
     Indication: BREAST CANCER
     Route: 048

REACTIONS (4)
  - EPISTAXIS [None]
  - MALIGNANT MELANOMA [None]
  - PHARYNGEAL INFLAMMATION [None]
  - STOMATITIS [None]
